FAERS Safety Report 5504444-6 (Version None)
Quarter: 2007Q4

REPORT INFORMATION
  Report Type: 
  Country: None (occurrence: None)
  Receive Date: 20071101
  Receipt Date: 20071022
  Transmission Date: 20080405
  Serious: Yes (Hospitalization, Other)
  Sender: FDA-Public Use
  Company Number: US-PFIZER INC-2007089016

PATIENT
  Sex: Female
  Weight: 65.8 kg

DRUGS (1)
  1. LIPITOR [Suspect]
     Indication: BLOOD CHOLESTEROL INCREASED

REACTIONS (5)
  - DRUG ADMINISTRATION ERROR [None]
  - FALL [None]
  - MEDICAL DEVICE COMPLICATION [None]
  - NO ADVERSE REACTION [None]
  - SKIN DISCOLOURATION [None]
